FAERS Safety Report 25424874 (Version 2)
Quarter: 2025Q3

REPORT INFORMATION
  Report Type: Spontaneous
  Country: JP (occurrence: JP)
  Receive Date: 20250611
  Receipt Date: 20250902
  Transmission Date: 20251021
  Serious: Yes (Other)
  Sender: JOHNSON AND JOHNSON
  Company Number: JP-BAYER-2025A076933

PATIENT
  Age: 72 Year
  Sex: Female

DRUGS (1)
  1. XARELTO [Suspect]
     Active Substance: RIVAROXABAN
     Indication: Atrial fibrillation
     Route: 048

REACTIONS (1)
  - Leukoplakia oral [Unknown]
